FAERS Safety Report 10197303 (Version 1)
Quarter: 2014Q2

REPORT INFORMATION
  Report Type: Spontaneous
  Country: IT (occurrence: IT)
  Receive Date: 20140527
  Receipt Date: 20140527
  Transmission Date: 20141212
  Serious: Yes (Disabling)
  Sender: FDA-Public Use
  Company Number: IT-GLAXOSMITHKLINE-B0997068A

PATIENT
  Sex: Female

DRUGS (3)
  1. LITHIUM [Suspect]
     Indication: BIPOLAR II DISORDER
     Dosage: 300MG PER DAY
     Route: 065
     Dates: start: 200906, end: 201103
  2. LAMOTRIGINE [Suspect]
     Indication: BIPOLAR II DISORDER
     Dosage: 200MG PER DAY
     Route: 065
     Dates: start: 200906
  3. CLONAZEPAM [Concomitant]
     Indication: BIPOLAR II DISORDER
     Dosage: .5MG PER DAY
     Dates: start: 200906

REACTIONS (2)
  - Tremor [Unknown]
  - Skin reaction [Unknown]
